FAERS Safety Report 6021428-2 (Version None)
Quarter: 2008Q4

REPORT INFORMATION
  Report Type: 
  Country: None (occurrence: None)
  Receive Date: 20081229
  Receipt Date: 20081223
  Transmission Date: 20090506
  Serious: Yes (Other)
  Sender: FDA-Public Use
  Company Number: D0060006A

PATIENT

DRUGS (1)
  1. HYCAMTIN [Suspect]
     Route: 065

REACTIONS (2)
  - CEREBRAL DISORDER [None]
  - DEMENTIA [None]
